FAERS Safety Report 24849628 (Version 1)
Quarter: 2025Q1

REPORT INFORMATION
  Report Type: Spontaneous
  Country: GB (occurrence: GB)
  Receive Date: 20250116
  Receipt Date: 20250116
  Transmission Date: 20250409
  Serious: Yes (Life-Threatening, Other)
  Sender: BAYER HEALTHCARE PHARMACEUTICALS INC.
  Company Number: GB-MHRA-EMIS-4752-78058921-3a84-463d-8aa0-1ee2770fabc5

PATIENT
  Age: 44 Year
  Sex: Female
  Weight: 121 kg

DRUGS (5)
  1. CIPROFLOXACIN [Suspect]
     Active Substance: CIPROFLOXACIN
     Dosage: 1 DF, BID
     Route: 048
     Dates: start: 20241227, end: 20250101
  2. CODEINE [Concomitant]
     Active Substance: CODEINE
     Dosage: 2 DF, QID
     Route: 048
     Dates: start: 20241121
  3. NITROFURANTOIN [Concomitant]
     Active Substance: NITROFURANTOIN
     Dosage: 1 DF, BID
     Route: 048
     Dates: start: 20241121, end: 20241220
  4. CIPROFLOXACIN [Concomitant]
     Active Substance: CIPROFLOXACIN
     Dosage: 1 DF, BID
     Route: 048
     Dates: start: 20241227
  5. CEPHALEXIN [Concomitant]
     Active Substance: CEPHALEXIN
     Dosage: 1 DF, BID
     Dates: start: 20250102

REACTIONS (2)
  - Suicidal ideation [Recovering/Resolving]
  - Tendonitis [Recovered/Resolved]
